FAERS Safety Report 11036792 (Version 1)
Quarter: 2015Q2

REPORT INFORMATION
  Report Type: Spontaneous
  Country: IN (occurrence: IN)
  Receive Date: 20150416
  Receipt Date: 20150416
  Transmission Date: 20150821
  Serious: Yes (Other)
  Sender: FDA-Public Use
  Company Number: IN-ACCORD-029958

PATIENT
  Age: 49 Year
  Sex: Female

DRUGS (1)
  1. AMLODIPINE [Suspect]
     Active Substance: AMLODIPINE BESYLATE
     Indication: HYPERTENSION
     Dosage: FOR THE LAST 12 YEARS
     Route: 048

REACTIONS (4)
  - Oral mucosal exfoliation [Unknown]
  - Lichen planus [Not Recovered/Not Resolved]
  - Periodontitis [Unknown]
  - Gingival hyperplasia [Recovered/Resolved with Sequelae]
